FAERS Safety Report 19957588 (Version 1)
Quarter: 2021Q4

REPORT INFORMATION
  Report Type: Spontaneous
  Country: DE (occurrence: DE)
  Receive Date: 20211014
  Receipt Date: 20211014
  Transmission Date: 20220303
  Serious: Yes (Other)
  Sender: FDA-Public Use
  Company Number: DE-JNJFOC-20210950885

PATIENT
  Age: 66 Year
  Sex: Female

DRUGS (11)
  1. DEXAMETHASONE [Suspect]
     Active Substance: DEXAMETHASONE
     Indication: Plasma cell myeloma
     Dosage: DATE OF THE LAST DOSAGE BEFORE EVENT ONSET 05/AUG/2018
     Route: 065
     Dates: start: 20180801, end: 20180928
  2. REVLIMID [Suspect]
     Active Substance: LENALIDOMIDE
     Indication: Plasma cell myeloma
     Dosage: DATE OF THE LAST DOSAGE BEFORE EVENT ONSET 06/AUG/2018
     Route: 065
     Dates: start: 20180801, end: 20180928
  3. DOXORUBICIN HYDROCHLORIDE [Suspect]
     Active Substance: DOXORUBICIN HYDROCHLORIDE
     Indication: Plasma cell myeloma
     Dosage: DATE OF THE LAST DOSAGE BEFORE EVENT ONSET 04/AUG/2018
     Route: 065
     Dates: start: 20180801, end: 20180928
  4. VELCADE [Suspect]
     Active Substance: BORTEZOMIB
     Indication: Plasma cell myeloma
     Dosage: DATE OF THE LAST DOSAGE BEFORE EVENT ONSET ON 04/AUG/2018?DOSE WAS 2.6 MG
     Route: 065
     Dates: start: 20180801, end: 20180928
  5. ALLOPURINOL [Concomitant]
     Active Substance: ALLOPURINOL
     Indication: Product used for unknown indication
     Route: 048
     Dates: start: 20180806, end: 20180821
  6. PANTOPRAZOLE [Concomitant]
     Active Substance: PANTOPRAZOLE
     Indication: Product used for unknown indication
     Route: 048
     Dates: start: 20180806
  7. MCP [Concomitant]
     Active Substance: METOCLOPRAMIDE HYDROCHLORIDE
     Indication: Product used for unknown indication
     Dosage: AS REQUIRED
     Route: 048
     Dates: start: 20180806, end: 20181012
  8. QUININE SULFATE [Concomitant]
     Active Substance: QUININE SULFATE
     Indication: Product used for unknown indication
     Dosage: IF NECESSARY
     Route: 048
     Dates: start: 20180918, end: 20181128
  9. CYANOCOBALAMIN [Concomitant]
     Active Substance: CYANOCOBALAMIN
     Indication: Product used for unknown indication
     Route: 042
     Dates: start: 20210821
  10. AKYNZEO [Concomitant]
     Active Substance: NETUPITANT\PALONOSETRON HYDROCHLORIDE
     Indication: Product used for unknown indication
     Dosage: PER CYCLE
     Route: 048
     Dates: start: 20180806, end: 20181012
  11. LIPEGFILGRASTIM [Concomitant]
     Active Substance: LIPEGFILGRASTIM
     Indication: Product used for unknown indication
     Route: 058
     Dates: start: 20180821, end: 20181012

REACTIONS (1)
  - Thrombocytopenia [Recovered/Resolved]

NARRATIVE: CASE EVENT DATE: 20180807
